FAERS Safety Report 5592533-X (Version None)
Quarter: 2008Q1

REPORT INFORMATION
  Report Type: 
  Country: None (occurrence: None)
  Receive Date: 20080115
  Receipt Date: 20080103
  Transmission Date: 20080703
  Serious: Yes (Other)
  Sender: FDA-Public Use
  Company Number: US-PFIZER INC-2008001242

PATIENT
  Sex: Male
  Weight: 78.9 kg

DRUGS (2)
  1. LYRICA [Suspect]
     Indication: NEURALGIA
  2. HYDROCODONE BITARTRATE + ACETAMINOPHEN [Concomitant]

REACTIONS (4)
  - CONFUSIONAL STATE [None]
  - DISTURBANCE IN ATTENTION [None]
  - FEMUR FRACTURE [None]
  - RASH [None]
